FAERS Safety Report 18063285 (Version 2)
Quarter: 2020Q3

REPORT INFORMATION
  Report Type: Report from Study
  Country: US (occurrence: US)
  Receive Date: 20200723
  Receipt Date: 20200803
  Transmission Date: 20201103
  Serious: Yes (Hospitalization, Other)
  Sender: FDA-Public Use
  Company Number: US-BAUSCH-BL-2020-020677

PATIENT
  Age: 81 Year
  Sex: Male
  Weight: 58.11 kg

DRUGS (6)
  1. FUROSEMIDE. [Suspect]
     Active Substance: FUROSEMIDE
     Route: 065
  2. XIFAXAN [Suspect]
     Active Substance: RIFAXIMIN
     Dosage: OPTIMIZED
     Route: 048
     Dates: start: 2020
  3. LACTULOSE. [Suspect]
     Active Substance: LACTULOSE
     Indication: HEPATIC ENCEPHALOPATHY
     Dosage: OPTIMIZED,10 GM/15 ML
     Route: 065
     Dates: start: 20200613, end: 202006
  4. XIFAXAN [Suspect]
     Active Substance: RIFAXIMIN
     Indication: HEPATIC ENCEPHALOPATHY
     Route: 048
     Dates: start: 20200615, end: 202006
  5. LACTULOSE. [Suspect]
     Active Substance: LACTULOSE
     Dosage: OPTIMIZED,10 GM/15 ML
     Route: 065
     Dates: start: 2020
  6. FUROSEMIDE. [Suspect]
     Active Substance: FUROSEMIDE
     Indication: PRODUCT USED FOR UNKNOWN INDICATION
     Route: 065
     Dates: end: 202006

REACTIONS (10)
  - Diarrhoea [Recovered/Resolved]
  - Renal impairment [Recovered/Resolved]
  - Hyperkalaemia [Recovering/Resolving]
  - Hepatic encephalopathy [Recovered/Resolved]
  - Hyponatraemia [Recovering/Resolving]
  - Lactic acidosis [Recovering/Resolving]
  - Anaemia [Recovering/Resolving]
  - Gait disturbance [Recovering/Resolving]
  - Fluid overload [Not Recovered/Not Resolved]
  - Condition aggravated [Recovered/Resolved]

NARRATIVE: CASE EVENT DATE: 2020
